FAERS Safety Report 8164111-X (Version None)
Quarter: 2012Q1

REPORT INFORMATION
  Report Type: 
  Country: None (occurrence: None)
  Receive Date: 20120224
  Receipt Date: 20120216
  Transmission Date: 20120608
  Serious: Yes (Hospitalization)
  Sender: FDA-Public Use
  Company Number: US-BAXTER-2012BH003039

PATIENT
  Sex: Male
  Weight: 74 kg

DRUGS (1)
  1. DIANEAL [Suspect]
     Indication: PERITONEAL DIALYSIS
     Route: 033
     Dates: start: 20100301, end: 20120208

REACTIONS (8)
  - CARDIAC FAILURE CONGESTIVE [None]
  - BLOOD PRESSURE ABNORMAL [None]
  - BLOOD GLUCOSE INCREASED [None]
  - FLUID RETENTION [None]
  - GLYCOSYLATED HAEMOGLOBIN INCREASED [None]
  - TREATMENT NONCOMPLIANCE [None]
  - HIP FRACTURE [None]
  - FALL [None]
